FAERS Safety Report 5693638-5 (Version None)
Quarter: 2008Q2

REPORT INFORMATION
  Report Type: 
  Country: None (occurrence: None)
  Receive Date: 20080328
  Receipt Date: 20070813
  Transmission Date: 20081010
  Serious: Yes (Other)
  Sender: FDA-Public Use
  Company Number: HQWYE538914AUG07

PATIENT
  Age: 47 Year
  Sex: Female

DRUGS (10)
  1. PROTONIX [Suspect]
     Indication: GASTROOESOPHAGEAL REFLUX DISEASE
     Dosage: TWICE DAILY, ORAL
     Route: 048
     Dates: start: 20070810
  2. AMBIEN CR [Concomitant]
  3. ZOLOFT [Concomitant]
  4. CLONAZEPAM (SERTRALINE HYDROCHLORIDE) [Concomitant]
  5. FLEXERIL [Concomitant]
  6. IBUPROFEN [Concomitant]
  7. ASTELIN [Concomitant]
  8. FLONASE [Concomitant]
  9. ATROVENT [Concomitant]
  10. XOPENEX [Concomitant]

REACTIONS (3)
  - ASTHENIA [None]
  - DIZZINESS [None]
  - UNEVALUABLE EVENT [None]
